FAERS Safety Report 23610330 (Version 1)
Quarter: 2024Q1

REPORT INFORMATION
  Report Type: Spontaneous
  Country: US (occurrence: None)
  Receive Date: 20240307
  Receipt Date: 20240307
  Transmission Date: 20240410
  Serious: No
  Sender: FDA-Public Use
  Company Number: None

PATIENT
  Age: 43 Year
  Sex: Female

DRUGS (1)
  1. KESIMPTA [Suspect]
     Active Substance: OFATUMUMAB
     Indication: Multiple sclerosis
     Dosage: FREQUENCY : MONTHLY;?

REACTIONS (12)
  - COVID-19 [None]
  - Fatigue [None]
  - Influenza like illness [None]
  - Multiple sclerosis [None]
  - Headache [None]
  - Cognitive disorder [None]
  - Hypotension [None]
  - Heart rate irregular [None]
  - Muscle fatigue [None]
  - Muscular weakness [None]
  - Vertigo [None]
  - Memory impairment [None]
